FAERS Safety Report 9226756 (Version 1)
Quarter: 2013Q2

REPORT INFORMATION
  Report Type: Spontaneous
  Country: US (occurrence: None)
  Receive Date: 20130410
  Receipt Date: 20130410
  Transmission Date: 20140414
  Serious: Yes (Other)
  Sender: FDA-Public Use
  Company Number: None

PATIENT
  Age: 49 Year
  Sex: Male

DRUGS (2)
  1. PEGASYS [Suspect]
     Indication: HEPATITIS C
     Dosage: 180 MCG ONCE A WEEK SUBCUTANEOULSY
     Route: 058
     Dates: start: 20130206, end: 20130404
  2. RIBAPAK [Suspect]
     Indication: HEPATITIS C
     Dosage: 600 MG 2 TIMES A DAY BY MOUTH
     Route: 048
     Dates: start: 20130206, end: 20130404

REACTIONS (1)
  - Rash generalised [None]
